FAERS Safety Report 8578566-X (Version None)
Quarter: 2012Q3

REPORT INFORMATION
  Report Type: 
  Country: None (occurrence: None)
  Receive Date: 20120808
  Receipt Date: 20120731
  Transmission Date: 20120928
  Serious: Yes (Hospitalization, Other)
  Sender: FDA-Public Use
  Company Number: IT-ASTRAZENECA-2012SE49250

PATIENT
  Age: 15250 Day
  Sex: Female

DRUGS (3)
  1. SEROQUEL [Suspect]
     Indication: INTENTIONAL OVERDOSE
     Dosage: 200 MILLIGRAM TABLETS, 10 DF SINGLE ADMINISTRATION
     Route: 048
     Dates: start: 20120711, end: 20120712
  2. COCAINE [Suspect]
     Route: 065
  3. ALCOHOL [Suspect]
     Route: 065
     Dates: start: 20120711, end: 20120711

REACTIONS (5)
  - DRUG ABUSE [None]
  - CONVULSION [None]
  - PSYCHOMOTOR HYPERACTIVITY [None]
  - SOPOR [None]
  - INTENTIONAL OVERDOSE [None]
